FAERS Safety Report 4944313-3 (Version None)
Quarter: 2006Q1

REPORT INFORMATION
  Report Type: 
  Country: None (occurrence: None)
  Receive Date: 20060309
  Receipt Date: 20060224
  Transmission Date: 20060701
  Serious: Yes (Hospitalization)
  Sender: FDA-Public Use
  Company Number: 2006BI003206

PATIENT
  Age: 51 Year
  Sex: Female
  Weight: 93.441 kg

DRUGS (6)
  1. AVONEX [Suspect]
     Indication: MULTIPLE SCLEROSIS
     Dosage: 30 UG;QW;IM
     Route: 030
     Dates: start: 20020201, end: 20031001
  2. AVONEX [Suspect]
     Indication: MULTIPLE SCLEROSIS
     Dosage: 30 UG;QW;IM
     Route: 030
     Dates: start: 20031001
  3. BACLOFEN [Concomitant]
  4. PRILOSEC [Concomitant]
  5. PROZAC [Concomitant]
  6. NEURONTIN [Concomitant]

REACTIONS (19)
  - ARTHRALGIA [None]
  - BLOOD CHOLESTEROL INCREASED [None]
  - BONE DISORDER [None]
  - DIABETES MELLITUS [None]
  - FOOT FRACTURE [None]
  - GAIT DISTURBANCE [None]
  - HYPERTENSION [None]
  - INFLUENZA LIKE ILLNESS [None]
  - INJECTION SITE ERYTHEMA [None]
  - INJECTION SITE PAIN [None]
  - KNEE ARTHROPLASTY [None]
  - MOVEMENT DISORDER [None]
  - MUSCLE SPASTICITY [None]
  - NERVE INJURY [None]
  - PAIN [None]
  - POST PROCEDURAL COMPLICATION [None]
  - POSTOPERATIVE FEVER [None]
  - WEIGHT DECREASED [None]
  - WRONG TECHNIQUE IN DRUG USAGE PROCESS [None]
